FAERS Safety Report 4283972-8 (Version None)
Quarter: 2004Q1

REPORT INFORMATION
  Report Type: 
  Country: None (occurrence: None)
  Receive Date: 20040121
  Receipt Date: 20021218
  Transmission Date: 20041129
  Serious: Yes (Other)
  Sender: FDA-Public Use
  Company Number: A03200201585

PATIENT
  Age: 78 Year
  Sex: Male

DRUGS (7)
  1. PLAVIX [Suspect]
     Dosage: 75 MG QD - ORAL
     Route: 048
     Dates: start: 20021122, end: 20021206
  2. DIGOXIN [Concomitant]
  3. POTASSIUM [Concomitant]
  4. ISOSORBIDE DINITRATE [Concomitant]
  5. ACETYLCYSTEINE [Concomitant]
  6. AMLODIPINE BESYLATE [Concomitant]
  7. LISINOPRIL [Concomitant]

REACTIONS (1)
  - HYPERSENSITIVITY [None]
